FAERS Safety Report 4448393-3 (Version None)
Quarter: 2004Q3

REPORT INFORMATION
  Report Type: 
  Country: None (occurrence: None)
  Receive Date: 20040909
  Receipt Date: 20040826
  Transmission Date: 20050211
  Serious: Yes (Life-Threatening)
  Sender: FDA-Public Use
  Company Number: STA-AE-04-MTX-387

PATIENT
  Age: 7 Year

DRUGS (8)
  1. METHOTREXATE [Suspect]
     Indication: HISTIOCYTOSIS HAEMATOPHAGIC
  2. METHOTREXATE [Suspect]
     Indication: JUVENILE ARTHRITIS
  3. ENBREL [Suspect]
     Indication: HISTIOCYTOSIS HAEMATOPHAGIC
     Dosage: SEE IMAGE
  4. ENBREL [Suspect]
     Indication: JUVENILE ARTHRITIS
     Dosage: SEE IMAGE
  5. CYCLOSPORINE [Suspect]
     Indication: HISTIOCYTOSIS HAEMATOPHAGIC
  6. CYCLOSPORINE [Suspect]
     Indication: JUVENILE ARTHRITIS
  7. PREDNISOLONE [Suspect]
     Indication: HISTIOCYTOSIS HAEMATOPHAGIC
  8. PREDNISOLONE [Suspect]
     Indication: JUVENILE ARTHRITIS

REACTIONS (4)
  - CONDITION AGGRAVATED [None]
  - HISTIOCYTOSIS HAEMATOPHAGIC [None]
  - JUVENILE ARTHRITIS [None]
  - TRANSAMINASES INCREASED [None]
